FAERS Safety Report 16533204 (Version 2)
Quarter: 2019Q3

REPORT INFORMATION
  Report Type: Spontaneous
  Country: US (occurrence: US)
  Receive Date: 20190705
  Receipt Date: 20190829
  Transmission Date: 20191004
  Serious: No
  Sender: FDA-Public Use
  Company Number: US-PFIZER INC-2019286201

PATIENT
  Age: 59 Year
  Sex: Female

DRUGS (2)
  1. IBRANCE [Suspect]
     Active Substance: PALBOCICLIB
     Indication: BREAST CANCER METASTATIC
     Dosage: UNK, CYCLIC (3 WEEKS ON ONE WEEK OFF AND SEE HER THE 4TH WEEK)
     Dates: start: 201810
  2. FEMARA [Concomitant]
     Active Substance: LETROZOLE
     Dosage: UNK

REACTIONS (4)
  - Fatigue [Unknown]
  - Depressed mood [Unknown]
  - Back pain [Unknown]
  - Nausea [Unknown]
